FAERS Safety Report 17773047 (Version 5)
Quarter: 2021Q4

REPORT INFORMATION
  Report Type: Report from Study
  Country: CA (occurrence: CA)
  Receive Date: 20200512
  Receipt Date: 20211004
  Transmission Date: 20220303
  Serious: Yes (Death, Other)
  Sender: FDA-Public Use
  Company Number: PHHY2017CA182701

PATIENT
  Age: 76 Year
  Sex: Female

DRUGS (6)
  1. SANDOSTATIN LAR DEPOT [Suspect]
     Active Substance: OCTREOTIDE ACETATE
     Indication: Neuroendocrine tumour
     Dosage: 30 MG, QMO ((EVERY 4 WEEKS)
     Route: 030
     Dates: start: 20091211
  2. SANDOSTATIN LAR DEPOT [Suspect]
     Active Substance: OCTREOTIDE ACETATE
     Dosage: 20 MG, QMO
     Route: 030
     Dates: start: 20130905
  3. SANDOSTATIN LAR DEPOT [Suspect]
     Active Substance: OCTREOTIDE ACETATE
  4. GLYBURIDE [Concomitant]
     Active Substance: GLYBURIDE
     Indication: Product used for unknown indication
     Dosage: 5 MG, QD
     Route: 065
  5. OXYCONTIN [Concomitant]
     Active Substance: OXYCODONE HYDROCHLORIDE
     Indication: Product used for unknown indication
     Dosage: UNK (AS NEEDED)
     Route: 065
  6. ACEPRIL [Concomitant]
     Indication: Product used for unknown indication
     Dosage: 40 MG, QD
     Route: 065

REACTIONS (11)
  - Breast cancer [Fatal]
  - Fall [Unknown]
  - Lower limb fracture [Recovering/Resolving]
  - Metastases to bone [Unknown]
  - Blood pressure increased [Unknown]
  - Deep vein thrombosis [Unknown]
  - Oropharyngeal pain [Unknown]
  - Malaise [Not Recovered/Not Resolved]
  - Pain in extremity [Unknown]
  - Balance disorder [Unknown]
  - Influenza like illness [Unknown]

NARRATIVE: CASE EVENT DATE: 20171129
